FAERS Safety Report 7237774-0 (Version None)
Quarter: 2011Q1

REPORT INFORMATION
  Report Type: 
  Country: None (occurrence: None)
  Receive Date: 20110121
  Receipt Date: 20110112
  Transmission Date: 20110831
  Serious: Yes (Death, Other)
  Sender: FDA-Public Use
  Company Number: CN-ROCHE-753319

PATIENT
  Sex: Male

DRUGS (8)
  1. TACROLIMUS [Concomitant]
     Indication: TRANSPLANT
     Dosage: FOR RENAL TRANSPLANTATION. BEFORE 2ND TRANSPLANT THE DOSE WAS REDUCED, MAINTIANED, THEN STOPPED.
     Dates: start: 19990528, end: 20060512
  2. METHYLPREDNISOLONE [Concomitant]
     Dosage: FROM DAY 1 TO 8 AT 500 MG, 500 MG, 240 MG, 200 MG, 160 MG, 120 MG, 80 MG AND 40 MG RESPECTIVELY.
     Route: 042
     Dates: start: 20060519, end: 20060526
  3. TACROLIMUS [Concomitant]
     Dosage: FOR COMBINED LIVER-KIDNEY TRANSPLANTATION.
     Dates: start: 20060519
  4. BASILIXIMAB [Concomitant]
     Dosage: FOR IMMUNE INDUCTION.
     Dates: start: 20060519, end: 20060519
  5. BASILIXIMAB [Concomitant]
     Dosage: FOR IMMUNE INDUCTION.
     Dates: start: 20060524, end: 20060524
  6. PREDNISONE [Concomitant]
     Dosage: STARTED AT 60 MG / D (REDUCED TO 8 MG / D 3-4 DAYS LATER ACCORDING TO THE SPECIFIC CONDITION).
     Route: 048
     Dates: start: 20060527
  7. MYCOPHENOLATE MOFETIL [Suspect]
     Indication: TRANSPLANT
     Dosage: FOR RENAL TRANSPLANT. BEFORE 2ND TRANSPLANT, THE DOSE WAS REDUCED, MAINTIANED, AND THEN STOPPED.
     Route: 065
     Dates: start: 19990528, end: 20060512
  8. MYCOPHENOLATE MOFETIL [Suspect]
     Dosage: FOR COMBINED LIVER-KIDNEY TRANSPLANTATION.
     Route: 065
     Dates: start: 20060519

REACTIONS (4)
  - LUNG INFECTION [None]
  - HEPATITIS C [None]
  - MULTI-ORGAN FAILURE [None]
  - RENAL FAILURE ACUTE [None]
